FAERS Safety Report 5053744-5 (Version None)
Quarter: 2006Q3

REPORT INFORMATION
  Report Type: 
  Country: None (occurrence: None)
  Receive Date: 20060718
  Receipt Date: 20060707
  Transmission Date: 20061208
  Serious: Yes (Disabling, Other)
  Sender: FDA-Public Use
  Company Number: 2006AC01279

PATIENT
  Age: 70 Year
  Sex: Male

DRUGS (1)
  1. ESOMEPRAZOLE [Suspect]
     Dosage: STOPPED DUE TO ADVERSE EVENT
     Route: 048

REACTIONS (3)
  - MUSCLE ATROPHY [None]
  - MYALGIA [None]
  - MYOPATHY [None]
